FAERS Safety Report 6146993-6 (Version None)
Quarter: 2009Q2

REPORT INFORMATION
  Report Type: 
  Country: None (occurrence: None)
  Receive Date: 20090407
  Receipt Date: 20090330
  Transmission Date: 20091009
  Serious: Yes (Other)
  Sender: FDA-Public Use
  Company Number: BR-JNJCH-2009008929

PATIENT
  Sex: Female
  Weight: 62 kg

DRUGS (1)
  1. COOL CITRUS LISTERINE MOUTHWASH [Suspect]
     Indication: DENTAL DISORDER PROPHYLAXIS
     Dosage: TEXT:UNSPECIFIED ONCE
     Route: 048
     Dates: start: 20090329, end: 20090329

REACTIONS (4)
  - APHTHOUS STOMATITIS [None]
  - BURNING SENSATION [None]
  - HYPOPHAGIA [None]
  - SPEECH DISORDER [None]
